FAERS Safety Report 8462737-7 (Version None)
Quarter: 2012Q2

REPORT INFORMATION
  Report Type: 
  Country: None (occurrence: None)
  Receive Date: 20120625
  Receipt Date: 20120619
  Transmission Date: 20120825
  Serious: Yes (Life-Threatening, Hospitalization)
  Sender: FDA-Public Use
  Company Number: US-ROCHE-1055127

PATIENT
  Age: 78 Year
  Sex: Female
  Weight: 55.5 kg

DRUGS (9)
  1. DOCETAXEL [Suspect]
     Indication: OVARIAN EPITHELIAL CANCER
     Route: 042
     Dates: start: 20120126
  2. DEXAMETHASONE [Concomitant]
  3. LIPITOR [Concomitant]
  4. AVASTIN [Suspect]
     Indication: OVARIAN EPITHELIAL CANCER
     Dosage: OVER 30 TO 90 MINUTES
     Route: 042
     Dates: start: 20120126
  5. CARBOPLATIN [Suspect]
     Indication: OVARIAN EPITHELIAL CANCER
     Dosage: AUC 5 OVER 30 MINS
     Route: 042
     Dates: start: 20120126
  6. REGLAN [Concomitant]
  7. ZOFRAN [Concomitant]
  8. ATENOLOL [Concomitant]
  9. LISINOPRIL [Concomitant]

REACTIONS (4)
  - RENAL FAILURE ACUTE [None]
  - HYPOTENSION [None]
  - DEHYDRATION [None]
  - SEPSIS [None]
